FAERS Safety Report 4670162-X (Version None)
Quarter: 2005Q2

REPORT INFORMATION
  Report Type: 
  Country: None (occurrence: None)
  Receive Date: 20050523
  Receipt Date: 20050516
  Transmission Date: 20051028
  Serious: Yes (Hospitalization)
  Sender: FDA-Public Use
  Company Number: 163-20785-03100157

PATIENT
  Age: 69 Year
  Sex: Male

DRUGS (16)
  1. THALOMID [Suspect]
     Indication: MULTIPLE MYELOMA
     Dosage: 100 MG, DAILY, ORAL
     Route: 048
     Dates: start: 20030128, end: 20030406
  2. MELPHALAN (MELPHALAN) [Suspect]
     Indication: MULTIPLE MYELOMA
     Dosage: SDEE IMAGE
     Route: 042
     Dates: start: 20030724, end: 20030724
  3. MELPHALAN (MELPHALAN) [Suspect]
     Indication: MULTIPLE MYELOMA
     Dosage: SDEE IMAGE
     Route: 042
     Dates: start: 20031028, end: 20031028
  4. CARMUSTINE [Suspect]
     Indication: MULTIPLE MYELOMA
     Dosage: 600 MG, DAILY,
     Dates: start: 20031024, end: 20031024
  5. ETOPOSIDE [Suspect]
     Indication: MULTIPLE MYELOMA
     Dosage: 400 MG, DAILY,
     Dates: start: 20031024, end: 20031027
  6. ATENOLOL [Concomitant]
  7. FOLIC ACID [Concomitant]
  8. CALCIUM (CALCIUM) [Concomitant]
  9. MULTIVITAMIN [Concomitant]
  10. ACYCLOVIR [Concomitant]
  11. GABAPENTIN [Concomitant]
  12. DARVON (DEXTROPROXYPHENE HYDROCHLORIDE) [Concomitant]
  13. PROCRIT [Concomitant]
  14. TENORMIN [Concomitant]
  15. DIFLUCAN [Concomitant]
  16. NORVASC [Concomitant]

REACTIONS (33)
  - ATELECTASIS [None]
  - ATRIAL FLUTTER [None]
  - ATRIOVENTRICULAR BLOCK [None]
  - BENIGN PROSTATIC HYPERPLASIA [None]
  - BLOOD ALBUMIN DECREASED [None]
  - CHEST PAIN [None]
  - CLOSTRIDIUM COLITIS [None]
  - COMPLICATIONS OF BONE MARROW TRANSPLANT [None]
  - DIZZINESS [None]
  - ENTEROCOCCAL BACTERAEMIA [None]
  - FEBRILE NEUTROPENIA [None]
  - FLUID OVERLOAD [None]
  - FOLLICULITIS [None]
  - HAEMATOCRIT DECREASED [None]
  - HAEMOGLOBIN DECREASED [None]
  - HYPERGLYCAEMIA [None]
  - HYPERTENSION [None]
  - HYPONATRAEMIA [None]
  - HYPOREFLEXIA [None]
  - MUCOSAL INFLAMMATION [None]
  - NAUSEA [None]
  - NERVOUS SYSTEM DISORDER [None]
  - OSTEOPENIA [None]
  - PLATELET COUNT DECREASED [None]
  - PROTEIN TOTAL INCREASED [None]
  - RADICULOPATHY [None]
  - RASH [None]
  - SPINAL OSTEOARTHRITIS [None]
  - STEM CELL TRANSPLANT [None]
  - SUPRAVENTRICULAR TACHYCARDIA [None]
  - SURGICAL PROCEDURE REPEATED [None]
  - SYNCOPE [None]
  - VERTIGO [None]
